FAERS Safety Report 10184935 (Version 2)
Quarter: 2014Q3

REPORT INFORMATION
  Report Type: Spontaneous
  Country: US (occurrence: None)
  Receive Date: 20140519
  Receipt Date: 20140703
  Transmission Date: 20150326
  Serious: Yes (Hospitalization)
  Sender: FDA-Public Use
  Company Number: UTC-047656

PATIENT
  Age: 52 Year
  Sex: Female
  Weight: 83.5 kg

DRUGS (4)
  1. REMODULIN [Suspect]
     Active Substance: TREPROSTINIL
     Indication: COR PULMONALE CHRONIC
     Route: 058
     Dates: start: 20121127
  2. ADCIRCA [Suspect]
     Active Substance: TADALAFIL
     Indication: PRODUCT USED FOR UNKNOWN INDICATION
  3. LETAIRIS [Suspect]
     Active Substance: AMBRISENTAN
     Indication: PRODUCT USED FOR UNKNOWN INDICATION
     Dates: start: 20130801
  4. COUMADIN (WARFARIN SODIUM) UNKNOWN [Concomitant]

REACTIONS (2)
  - Dyspnoea [None]
  - Anaemia [None]

NARRATIVE: CASE EVENT DATE: 20140409
